FAERS Safety Report 10055569 (Version 1)
Quarter: 2014Q2

REPORT INFORMATION
  Report Type: Spontaneous
  Country: US (occurrence: None)
  Receive Date: 20140402
  Receipt Date: 20140402
  Transmission Date: 20141212
  Serious: Yes (Other)
  Sender: FDA-Public Use
  Company Number: None

PATIENT
  Age: 27 Year
  Sex: Male
  Weight: 145.15 kg

DRUGS (3)
  1. OXYCODONE/ACETAMINOPHEN [Suspect]
     Indication: PAIN
     Dosage: 1 PILL THREE TIMES DAILY TAKEN BY MOUTH
     Route: 048
     Dates: start: 20140219, end: 20140401
  2. OXYCODONE/ACETAMINOPHEN [Suspect]
     Indication: FIBROMYALGIA
     Dosage: 1 PILL THREE TIMES DAILY TAKEN BY MOUTH
     Route: 048
     Dates: start: 20140219, end: 20140401
  3. OXYCODONE/ACETAMINOPHEN [Suspect]
     Indication: BACK PAIN
     Dosage: 1 PILL THREE TIMES DAILY TAKEN BY MOUTH
     Route: 048
     Dates: start: 20140219, end: 20140401

REACTIONS (2)
  - Drug ineffective [None]
  - Product substitution issue [None]
